FAERS Safety Report 7081576-5 (Version None)
Quarter: 2010Q4

REPORT INFORMATION
  Report Type: 
  Country: None (occurrence: None)
  Receive Date: 20101103
  Receipt Date: 20101028
  Transmission Date: 20110411
  Serious: Yes (Death)
  Sender: FDA-Public Use
  Company Number: JP-BRISTOL-MYERS SQUIBB COMPANY-15359581

PATIENT
  Age: 61 Year
  Sex: Female
  Weight: 62 kg

DRUGS (4)
  1. BARACLUDE [Suspect]
     Indication: HEPATITIS B
     Dosage: 1 DF=0.5X1 MG
     Route: 048
     Dates: start: 20071106, end: 20080918
  2. CALCIUM PANTOTHENATE [Concomitant]
     Indication: PIGMENTATION DISORDER
     Dosage: INTERRUPTED ON 24JAN08,RESTARTED ON 01APR08
     Route: 048
     Dates: start: 20071212, end: 20080428
  3. ASCORBIC ACID [Concomitant]
     Indication: PIGMENTATION DISORDER
     Dosage: INTERRUPTED ON 24JAN08,RESTARTED ON 01APR08
     Route: 048
     Dates: start: 20071212, end: 20080428
  4. TRANEXAMIC ACID [Concomitant]
     Indication: PIGMENTATION DISORDER
     Dosage: CAP,INTERRUPTED ON 24JAN08,RESTARTED ON 01APR08
     Route: 048
     Dates: start: 20071212, end: 20080428

REACTIONS (3)
  - HEPATIC FAILURE [None]
  - HEPATIC NEOPLASM MALIGNANT [None]
  - METASTASES TO BONE [None]
